FAERS Safety Report 10278523 (Version 1)
Quarter: 2014Q3

REPORT INFORMATION
  Report Type: Spontaneous
  Country: US (occurrence: US)
  Receive Date: 20140704
  Receipt Date: 20140704
  Transmission Date: 20150326
  Serious: No
  Sender: FDA-Public Use
  Company Number: US-ASTRAZENECA-2014SE46415

PATIENT
  Age: 76 Year
  Sex: Male
  Weight: 90.7 kg

DRUGS (1)
  1. SYMBICORT [Suspect]
     Active Substance: BUDESONIDE\FORMOTEROL FUMARATE DIHYDRATE
     Indication: CHRONIC OBSTRUCTIVE PULMONARY DISEASE
     Dosage: 80 4.5 2 PUFFS BID
     Route: 055
     Dates: start: 2013

REACTIONS (3)
  - Constipation [Unknown]
  - Intentional product misuse [Unknown]
  - Dry mouth [Unknown]

NARRATIVE: CASE EVENT DATE: 2013
